FAERS Safety Report 9745072 (Version 2)
Quarter: 2014Q2

REPORT INFORMATION
  Report Type: Report from Study
  Country: US (occurrence: US)
  Receive Date: 20131211
  Receipt Date: 20140402
  Transmission Date: 20141212
  Serious: Yes (Other)
  Sender: FDA-Public Use
  Company Number: US-ROCHE-1316150

PATIENT
  Age: 76 Year
  Sex: 0

DRUGS (1)
  1. RITUXIMAB [Suspect]
     Indication: CHRONIC LYMPHOCYTIC LEUKAEMIA
     Dosage: LABEL STRENGHT: 10 MG/ML
     Route: 042
     Dates: start: 20130531

REACTIONS (3)
  - Dyspnoea [Unknown]
  - Cyanosis [Unknown]
  - Hypoxia [Unknown]
